FAERS Safety Report 11564104 (Version 1)
Quarter: 2015Q3

REPORT INFORMATION
  Report Type: Spontaneous
  Country: US (occurrence: US)
  Receive Date: 20150928
  Receipt Date: 20150928
  Transmission Date: 20151125
  Serious: Yes (Other)
  Sender: FDA-Public Use
  Company Number: US-UCBSA-2014009009

PATIENT
  Age: 42 Year
  Sex: Male
  Weight: 81.6 kg

DRUGS (2)
  1. ALBUTEROL. [Concomitant]
     Active Substance: ALBUTEROL
     Indication: ASTHMA
     Dosage: UNK
  2. CIMZIA [Suspect]
     Active Substance: CERTOLIZUMAB PEGOL
     Indication: CROHN^S DISEASE
     Dosage: 400 MG, EV 4 WEEKS
     Route: 058
     Dates: start: 20100205, end: 20150625

REACTIONS (3)
  - Anal dilation procedure [Recovered/Resolved]
  - Surgery [Recovered/Resolved]
  - Abdominal operation [Recovered/Resolved]

NARRATIVE: CASE EVENT DATE: 20140821
